FAERS Safety Report 15722012 (Version 1)
Quarter: 2018Q4

REPORT INFORMATION
  Report Type: Spontaneous
  Country: US (occurrence: US)
  Receive Date: 20181207
  Receipt Date: 20181207
  Transmission Date: 20190205
  Serious: No
  Sender: FDA-Public Use
  Company Number: None

PATIENT
  Age: 56 Year
  Sex: Female

DRUGS (16)
  1. NITROSTAT [Concomitant]
     Active Substance: NITROGLYCERIN
  2. LOSARAN [Concomitant]
  3. PANTOPRAZOLE [Concomitant]
     Active Substance: PANTOPRAZOLE
  4. BACLOFEN. [Concomitant]
     Active Substance: BACLOFEN
  5. AMPYRA [Suspect]
     Active Substance: DALFAMPRIDINE
     Indication: MULTIPLE SCLEROSIS
     Dosage: ?          OTHER FREQUENCY:Q12H;?
     Route: 048
     Dates: start: 201205, end: 201807
  6. METFORMIN [Suspect]
     Active Substance: METFORMIN HYDROCHLORIDE
  7. GLIMEPIRIDE. [Concomitant]
     Active Substance: GLIMEPIRIDE
  8. CLOPIDOGREL [Concomitant]
     Active Substance: CLOPIDOGREL BISULFATE
  9. INSULIN [Concomitant]
     Active Substance: INSULIN NOS
  10. ROSUVASTATIN. [Concomitant]
     Active Substance: ROSUVASTATIN
  11. GABAPENTIN. [Concomitant]
     Active Substance: GABAPENTIN
  12. RITUXAN [Concomitant]
     Active Substance: RITUXIMAB
  13. VITAMIN D3 [Concomitant]
     Active Substance: CHOLECALCIFEROL
  14. ASPIRIN. [Concomitant]
     Active Substance: ASPIRIN
  15. METOPROLOL. [Concomitant]
     Active Substance: METOPROLOL
  16. NPH INSULIN [Concomitant]
     Active Substance: INSULIN BEEF

REACTIONS (1)
  - Hypoaesthesia [None]

NARRATIVE: CASE EVENT DATE: 20180725
